FAERS Safety Report 4352664-9 (Version None)
Quarter: 2004Q2

REPORT INFORMATION
  Report Type: 
  Country: None (occurrence: None)
  Receive Date: 20040504
  Receipt Date: 20040405
  Transmission Date: 20050107
  Serious: Yes (Hospitalization, Other)
  Sender: FDA-Public Use
  Company Number: DK-BRISTOL-MYERS SQUIBB COMPANY-12550869

PATIENT
  Age: 62 Year
  Sex: Male
  Weight: 82 kg

DRUGS (3)
  1. CISPLATIN [Suspect]
     Indication: BLADDER CANCER
     Dosage: 1ST DOSE - 27JAN04
     Dates: start: 20040330, end: 20040330
  2. TAXOL [Suspect]
     Indication: BLADDER CANCER
     Dosage: 1ST DOSE- 27JAN04
     Dates: start: 20040330, end: 20040330
  3. GEMCITABINE [Suspect]
     Indication: BLADDER CANCER
     Dosage: 1ST DOSE- 27JAN04
     Dates: start: 20040330, end: 20040330

REACTIONS (3)
  - PYREXIA [None]
  - SYNCOPE [None]
  - URINARY TRACT INFECTION [None]
